FAERS Safety Report 9115740 (Version 1)
Quarter: 2013Q1

REPORT INFORMATION
  Report Type: Spontaneous
  Country: US (occurrence: None)
  Receive Date: 20130221
  Receipt Date: 20130221
  Transmission Date: 20140127
  Serious: No
  Sender: FDA-Public Use
  Company Number: None

PATIENT
  Age: 70 Year
  Sex: Female
  Weight: 104.33 kg

DRUGS (1)
  1. REMICADE [Suspect]
     Route: 042

REACTIONS (1)
  - Herpes zoster [None]
